FAERS Safety Report 7429451-8 (Version None)
Quarter: 2011Q2

REPORT INFORMATION
  Report Type: 
  Country: None (occurrence: None)
  Receive Date: 20110421
  Receipt Date: 20110414
  Transmission Date: 20111010
  Serious: Yes (Other)
  Sender: FDA-Public Use
  Company Number: US-B.I. PHARMACEUTICALS,INC./RIDGEFIELD-2011-BP-10822BP

PATIENT
  Sex: Male

DRUGS (1)
  1. AGGRENOX [Suspect]

REACTIONS (2)
  - CEREBROVASCULAR ACCIDENT [None]
  - DELUSIONAL DISORDER, UNSPECIFIED TYPE [None]
